FAERS Safety Report 7376917-5 (Version None)
Quarter: 2011Q1

REPORT INFORMATION
  Report Type: 
  Country: None (occurrence: None)
  Receive Date: 20110327
  Receipt Date: 20110203
  Transmission Date: 20110831
  Serious: Yes (Disabling, Other)
  Sender: FDA-Public Use
  Company Number: US-BAYER-201031666NA

PATIENT
  Sex: Male
  Weight: 70 kg

DRUGS (28)
  1. PROHANCE [Suspect]
     Dates: start: 20050414, end: 20050414
  2. LISINOPRIL [Concomitant]
  3. AMLODIPINE [Concomitant]
  4. OPTIMARK [Suspect]
  5. MULTIHANCE [Suspect]
  6. OSCAL [Concomitant]
  7. FOLTX [Concomitant]
  8. RENAGEL [Concomitant]
  9. OMNISCAN [Suspect]
     Dosage: 15 ML, UNK
     Dates: start: 20041015, end: 20041015
  10. HECTOROL [Concomitant]
  11. FOSRENOL [Concomitant]
  12. MAGNEVIST [Suspect]
  13. OMNISCAN [Suspect]
     Indication: NUCLEAR MAGNETIC RESONANCE IMAGING ABDOMINAL
  14. PROAMATINE [Concomitant]
  15. UNCODEABLE ^UNCLASSIFIABLE^ [Concomitant]
  16. COZAAR [Concomitant]
  17. SENSIPAR [Concomitant]
  18. IRON [Concomitant]
  19. GADOLINIUM IN UNSPECIFIED DRUG [Suspect]
     Dosage: UNK
     Dates: start: 20050414, end: 20050414
  20. RENA-VITE [Concomitant]
  21. CLONIDINE [Concomitant]
  22. OMNISCAN [Suspect]
     Indication: NUCLEAR MAGNETIC RESONANCE IMAGING BRAIN
     Dosage: 30 ML, ONCE
     Dates: start: 20040713, end: 20040713
  23. PROHANCE [Suspect]
     Indication: NUCLEAR MAGNETIC RESONANCE IMAGING ABDOMINAL
     Dosage: 17 ML, ONCE
     Dates: start: 20030703, end: 20030703
  24. PHOSLO [Concomitant]
  25. CALCITRIOL [Concomitant]
  26. EPOGEN [Concomitant]
  27. PLAVIX [Concomitant]
  28. METOPROLOL [Concomitant]

REACTIONS (15)
  - PARAESTHESIA [None]
  - DERMATITIS BULLOUS [None]
  - RASH MACULAR [None]
  - EXTREMITY CONTRACTURE [None]
  - GENERAL PHYSICAL HEALTH DETERIORATION [None]
  - HYPOAESTHESIA [None]
  - MUSCULAR WEAKNESS [None]
  - NEPHROGENIC SYSTEMIC FIBROSIS [None]
  - DEFORMITY [None]
  - SCAR [None]
  - MOBILITY DECREASED [None]
  - FIBROSIS [None]
  - PAIN [None]
  - JOINT RANGE OF MOTION DECREASED [None]
  - RASH PAPULAR [None]
